FAERS Safety Report 7480899-5 (Version None)
Quarter: 2011Q2

REPORT INFORMATION
  Report Type: 
  Country: None (occurrence: None)
  Receive Date: 20110506
  Receipt Date: 20110429
  Transmission Date: 20111010
  Serious: Yes (Hospitalization)
  Sender: FDA-Public Use
  Company Number: GB-GDP-11410613

PATIENT
  Sex: Female

DRUGS (3)
  1. VANCOMYCIN [Suspect]
     Indication: SKIN ULCER
  2. TEICOPLANIN (TEICOPLANIN) [Suspect]
     Indication: SKIN ULCER
  3. METRONIDAZOLE [Suspect]
     Indication: SKIN ULCER

REACTIONS (3)
  - GENERAL PHYSICAL HEALTH DETERIORATION [None]
  - DRUG INEFFECTIVE FOR UNAPPROVED INDICATION [None]
  - SEPTIC SHOCK [None]
